FAERS Safety Report 17561230 (Version 1)
Quarter: 2020Q1

REPORT INFORMATION
  Report Type: Spontaneous
  Country: US (occurrence: US)
  Receive Date: 20200312
  Receipt Date: 20200312
  Transmission Date: 20200409
  Serious: Yes (Hospitalization)
  Sender: FDA-Public Use
  Company Number: None

PATIENT
  Age: 69 Year
  Sex: Male

DRUGS (1)
  1. RIVAROXABAN (RIVAROXABAN 20MG TAB) [Suspect]
     Active Substance: RIVAROXABAN
     Indication: ATRIAL FIBRILLATION
     Route: 048
     Dates: start: 20190711

REACTIONS (5)
  - Intestinal varices haemorrhage [None]
  - Faeces discoloured [None]
  - Peptic ulcer [None]
  - Upper gastrointestinal haemorrhage [None]
  - Gastritis [None]

NARRATIVE: CASE EVENT DATE: 20200226
